FAERS Safety Report 8521094-8 (Version None)
Quarter: 2012Q3

REPORT INFORMATION
  Report Type: 
  Country: None (occurrence: None)
  Receive Date: 20120719
  Receipt Date: 20120710
  Transmission Date: 20120928
  Serious: Yes (Other)
  Sender: FDA-Public Use
  Company Number: US-JNJFOC-20120314657

PATIENT
  Sex: Female

DRUGS (6)
  1. BENADRYL [Suspect]
     Indication: MULTIPLE ALLERGIES
     Route: 048
  2. EPIPEN [Suspect]
     Indication: MULTIPLE ALLERGIES
     Dosage: 11-12 YEARS
     Route: 065
  3. ALL OTHER THERAPEUTIC PRODUCTS [Concomitant]
     Indication: PRODUCT USED FOR UNKNOWN INDICATION
     Route: 065
  4. ZYRTEC ALLERGY [Suspect]
     Route: 048
  5. UNSPECIFIED BLOOD PRESSURE MEDS [Concomitant]
     Indication: CARDIAC DISORDER
     Route: 065
  6. ZYRTEC ALLERGY [Suspect]
     Indication: MULTIPLE ALLERGIES
     Dosage: 11-12 YEARS
     Route: 048

REACTIONS (5)
  - DIZZINESS [None]
  - PRODUCT QUALITY ISSUE [None]
  - OEDEMA PERIPHERAL [None]
  - EXTRASYSTOLES [None]
  - DRUG INEFFECTIVE [None]
